FAERS Safety Report 8918899 (Version 2)
Quarter: 2013Q2

REPORT INFORMATION
  Report Type: Spontaneous
  Country: FI (occurrence: FI)
  Receive Date: 20121121
  Receipt Date: 20130430
  Transmission Date: 20140414
  Serious: Yes (Other)
  Sender: FDA-Public Use
  Company Number: FI-JNJFOC-20111105501

PATIENT
  Age: 56 Year
  Sex: Female

DRUGS (6)
  1. RISPERDAL CONSTA [Suspect]
     Indication: SCHIZOPHRENIA, PARANOID TYPE
     Route: 030
  2. RISPERDAL CONSTA [Suspect]
     Indication: SCHIZOPHRENIA, PARANOID TYPE
     Route: 030
     Dates: start: 200512
  3. UNKNOWN MEDICATION [Concomitant]
     Indication: PRODUCT USED FOR UNKNOWN INDICATION
     Route: 065
  4. BLOOD PRESSURE MEDICATION NOS [Concomitant]
     Indication: BLOOD PRESSURE
     Route: 065
  5. DIAZEPAM [Concomitant]
     Indication: SLEEP DISORDER THERAPY
     Route: 065
  6. PANACOD [Concomitant]
     Route: 065

REACTIONS (8)
  - Weight increased [Unknown]
  - Epilepsy [Unknown]
  - Nerve injury [Unknown]
  - Neuralgia [Unknown]
  - Tooth loss [Unknown]
  - Alopecia [Not Recovered/Not Resolved]
  - Dental caries [Unknown]
  - Hypoacusis [Unknown]
